FAERS Safety Report 20156138 (Version 1)
Quarter: 2021Q4

REPORT INFORMATION
  Report Type: Spontaneous
  Country: BR (occurrence: BR)
  Receive Date: 20211207
  Receipt Date: 20211207
  Transmission Date: 20220303
  Serious: Yes (Hospitalization)
  Sender: FDA-Public Use
  Company Number: BR-ABBOTT-2021A-1343583

PATIENT
  Sex: Female
  Weight: 85 kg

DRUGS (1)
  1. DEPAKOTE ER [Suspect]
     Active Substance: DIVALPROEX SODIUM
     Indication: Depression
     Route: 048
     Dates: start: 20210826

REACTIONS (6)
  - Epistaxis [Not Recovered/Not Resolved]
  - Headache [Recovered/Resolved]
  - Gastritis [Recovered/Resolved]
  - Abdominal pain upper [Unknown]
  - Product use in unapproved indication [Unknown]
  - Off label use [Unknown]
